FAERS Safety Report 4883070-6 (Version None)
Quarter: 2006Q1

REPORT INFORMATION
  Report Type: 
  Country: None (occurrence: None)
  Receive Date: 20060118
  Receipt Date: 20060106
  Transmission Date: 20060701
  Serious: Yes (Hospitalization)
  Sender: FDA-Public Use
  Company Number: FR-AVENTIS-200610101FR

PATIENT
  Age: 76 Year
  Sex: Female
  Weight: 96 kg

DRUGS (3)
  1. LOVENOX [Suspect]
     Indication: DRUG USE FOR UNKNOWN INDICATION
     Route: 058
     Dates: start: 20051102, end: 20051117
  2. KARDEGIC [Concomitant]
     Route: 048
     Dates: end: 20051117
  3. PLAVIX [Concomitant]
     Route: 048
     Dates: end: 20051117

REACTIONS (3)
  - HAEMATOMA [None]
  - OVERDOSE [None]
  - RENAL FAILURE ACUTE [None]
